FAERS Safety Report 7294673-6 (Version None)
Quarter: 2011Q1

REPORT INFORMATION
  Report Type: 
  Country: None (occurrence: None)
  Receive Date: 20110216
  Receipt Date: 20110107
  Transmission Date: 20110831
  Serious: Yes (Other)
  Sender: FDA-Public Use
  Company Number: US-BAYER-200927296NA

PATIENT
  Sex: Male
  Weight: 69 kg

DRUGS (13)
  1. MAGNEVIST [Suspect]
     Dosage: 130 ML (DAILY DOSE), , INTRAVENOUS
     Route: 042
     Dates: start: 20051202, end: 20051202
  2. MAGNEVIST [Suspect]
     Dosage: 130 ML (DAILY DOSE), , INTRAVENOUS
     Route: 042
     Dates: start: 20051130, end: 20051130
  3. ASPIRIN [Concomitant]
  4. PLAVIX [Concomitant]
  5. NIFEDIPINE [Concomitant]
  6. MAGNEVIST [Suspect]
     Indication: COMPUTERISED TOMOGRAM ABDOMEN
     Dosage: 50 ML (DAILY DOSE), , INTRAVENOUS
     Route: 042
     Dates: start: 20050915, end: 20050915
  7. MINOXIDIL [Concomitant]
  8. LABETALOL HCL [Concomitant]
  9. MAGNEVIST [Suspect]
     Dosage: 51 ML (DAILY DOSE), , INTRAVENOUS
     Route: 042
     Dates: start: 20061006, end: 20061006
  10. EPOGEN [Concomitant]
  11. RENAGEL [Concomitant]
  12. COZAAR [Concomitant]
  13. AMIODARONE [Concomitant]

REACTIONS (23)
  - DEPRESSION [None]
  - SKIN PLAQUE [None]
  - SKIN EXFOLIATION [None]
  - NEPHROGENIC SYSTEMIC FIBROSIS [None]
  - SKIN INDURATION [None]
  - SKIN HYPERTROPHY [None]
  - ERYTHEMA [None]
  - INSOMNIA [None]
  - PAIN [None]
  - GENERAL PHYSICAL HEALTH DETERIORATION [None]
  - OEDEMA PERIPHERAL [None]
  - ANXIETY [None]
  - MUSCLE TIGHTNESS [None]
  - RESTLESSNESS [None]
  - DISTURBANCE IN ATTENTION [None]
  - ARTHRALGIA [None]
  - NECK PAIN [None]
  - JOINT RANGE OF MOTION DECREASED [None]
  - PAIN IN EXTREMITY [None]
  - STRESS [None]
  - DRY SKIN [None]
  - CORNEAL DEPOSITS [None]
  - ASTHENIA [None]
